FAERS Safety Report 10263072 (Version 1)
Quarter: 2014Q2

REPORT INFORMATION
  Report Type: Report from Study
  Country: US (occurrence: US)
  Receive Date: 20140626
  Receipt Date: 20140626
  Transmission Date: 20141212
  Serious: Yes (Other)
  Sender: FDA-Public Use
  Company Number: US-MYLANLABS-2014S1000513

PATIENT
  Age: 58 Year
  Sex: Female

DRUGS (13)
  1. CLOZAPINE TABLETS [Suspect]
     Route: 048
     Dates: start: 20120529, end: 20140103
  2. CLOZAPINE TABLETS [Suspect]
     Route: 048
     Dates: start: 20120529, end: 20140103
  3. RANITIDINE [Concomitant]
  4. TRAZODONE [Concomitant]
  5. DOCUSATE SODIUM [Concomitant]
     Indication: LAXATIVE SUPPORTIVE CARE
  6. DIVALPROEX [Concomitant]
  7. POLYETHYLENE GLYCOL [Concomitant]
  8. IBUPROFEN [Concomitant]
  9. BENZOTROPINE [Concomitant]
  10. CITALOPRAM [Concomitant]
  11. OXYBUTYNIN [Concomitant]
  12. LACTULOSE [Concomitant]
  13. PSYLLIUM /01328801/ [Concomitant]
     Indication: LAXATIVE SUPPORTIVE CARE

REACTIONS (1)
  - Granulocytopenia [Not Recovered/Not Resolved]
